FAERS Safety Report 11914900 (Version 1)
Quarter: 2016Q1

REPORT INFORMATION
  Report Type: Spontaneous
  Country: JP (occurrence: JP)
  Receive Date: 20160113
  Receipt Date: 20160113
  Transmission Date: 20160526
  Serious: Yes (Death, Other)
  Sender: FDA-Public Use
  Company Number: JP-CORDEN PHARMA LATINA S.P.A.-JP-2015COR000435

PATIENT
  Age: 72 Year
  Sex: Female

DRUGS (7)
  1. CARBOPLATIN. [Suspect]
     Active Substance: CARBOPLATIN
     Indication: METASTASES TO LYMPH NODES
  2. ERIBULIN [Suspect]
     Active Substance: ERIBULIN
     Indication: BREAST CANCER STAGE II
     Dosage: UNK
  3. CAPECITABINE. [Suspect]
     Active Substance: CAPECITABINE
     Indication: BREAST CANCER STAGE II
     Dosage: UNK
  4. CARBOPLATIN. [Suspect]
     Active Substance: CARBOPLATIN
     Indication: BREAST CANCER STAGE II
     Dosage: UNK
  5. ERIBULIN [Suspect]
     Active Substance: ERIBULIN
     Indication: METASTASES TO LYMPH NODES
  6. TAMOXIFEN [Suspect]
     Active Substance: TAMOXIFEN
     Indication: BREAST CANCER STAGE II
     Dosage: UNK
  7. ANASTROZOLE. [Suspect]
     Active Substance: ANASTROZOLE
     Indication: BREAST CANCER STAGE II
     Dosage: UNK

REACTIONS (9)
  - Anaemia [Recovering/Resolving]
  - Jaundice [Recovering/Resolving]
  - Liver disorder [Recovering/Resolving]
  - Portal hypertension [Recovering/Resolving]
  - Hepatic failure [Fatal]
  - Varices oesophageal [Fatal]
  - Haemorrhage [Fatal]
  - Haematemesis [Unknown]
  - Pseudocirrhosis [Recovering/Resolving]
